FAERS Safety Report 5053307-1 (Version None)
Quarter: 2006Q3

REPORT INFORMATION
  Report Type: 
  Country: None (occurrence: None)
  Receive Date: 20060712
  Receipt Date: 20060626
  Transmission Date: 20061208
  Serious: Yes (Hospitalization)
  Sender: FDA-Public Use
  Company Number: DSA_28387_2006

PATIENT
  Age: 50 Year
  Sex: Male

DRUGS (8)
  1. TAVOR [Suspect]
     Dosage: 0.5 MG PO
     Route: 048
     Dates: start: 20050129, end: 20050131
  2. TAVOR [Suspect]
     Dosage: 1 MG PO
     Route: 048
     Dates: start: 20050128, end: 20050128
  3. TAVOR [Suspect]
     Dosage: 2 MG PO
     Route: 048
     Dates: start: 20050119, end: 20050127
  4. VENLAFAXINE HCL [Suspect]
     Indication: DEPRESSION
     Dosage: VAR PO
     Route: 048
     Dates: start: 20050119, end: 20050124
  5. VENLAFAXINE HCL [Suspect]
     Indication: DEPRESSION
     Dosage: 225 MG PO
     Route: 048
     Dates: start: 20050125, end: 20050201
  6. VENLAFAXINE HCL [Suspect]
     Indication: DEPRESSION
     Dosage: 300 MG PO
     Route: 048
     Dates: start: 20050206, end: 20050208
  7. VENLAFAXINE HCL [Suspect]
     Indication: DEPRESSION
     Dosage: 150 MG PO
     Route: 048
     Dates: start: 20050209, end: 20050213
  8. VENLAFAXINE HCL [Suspect]
     Indication: DEPRESSION
     Dosage: 75 MG PO
     Route: 048
     Dates: start: 20050214, end: 20050214

REACTIONS (9)
  - ABNORMAL BEHAVIOUR [None]
  - DELIRIUM [None]
  - DELUSION [None]
  - DISORIENTATION [None]
  - DISTURBANCE IN ATTENTION [None]
  - DRUG WITHDRAWAL SYNDROME [None]
  - MEMORY IMPAIRMENT [None]
  - SLEEP DISORDER [None]
  - THINKING ABNORMAL [None]
